FAERS Safety Report 25316049 (Version 2)
Quarter: 2025Q2

REPORT INFORMATION
  Report Type: Spontaneous
  Country: US (occurrence: US)
  Receive Date: 20250515
  Receipt Date: 20250603
  Transmission Date: 20250717
  Serious: Yes (Life-Threatening, Hospitalization, Other)
  Sender: NOVO NORDISK
  Company Number: US-NOVOPROD-1426159

PATIENT
  Age: 63 Year
  Sex: Male

DRUGS (2)
  1. INSULIN ASPART [Suspect]
     Active Substance: INSULIN ASPART
     Indication: Diabetes mellitus
  2. KEPPRA [Suspect]
     Active Substance: LEVETIRACETAM
     Indication: Seizure

REACTIONS (11)
  - Loss of consciousness [Unknown]
  - Coma [Unknown]
  - Tracheostomy [Unknown]
  - Renal impairment [Unknown]
  - Organ failure [Unknown]
  - Sepsis [Unknown]
  - Drug hypersensitivity [Unknown]
  - Pulmonary oedema [Unknown]
  - COVID-19 [Not Recovered/Not Resolved]
  - Acute respiratory distress syndrome [Unknown]
  - Product dose omission issue [Unknown]

NARRATIVE: CASE EVENT DATE: 20180101
